FAERS Safety Report 14458225 (Version 2)
Quarter: 2018Q2

REPORT INFORMATION
  Report Type: Report from Study
  Country: JP (occurrence: JP)
  Receive Date: 20180130
  Receipt Date: 20180607
  Transmission Date: 20180711
  Serious: Yes (Hospitalization, Other)
  Sender: FDA-Public Use
  Company Number: JP-ACTELION-A-CH2018-166278

PATIENT
  Age: 59 Year
  Sex: Male

DRUGS (18)
  1. CRESTOR [Concomitant]
     Active Substance: ROSUVASTATIN CALCIUM
  2. LIMAPROST ALFADEX [Concomitant]
     Active Substance: LIMAPROST
  3. ADCIRCA [Suspect]
     Active Substance: TADALAFIL
     Indication: SYSTEMIC SCLERODERMA
     Dosage: 20 MG, QD
     Route: 048
     Dates: start: 20170817, end: 20170823
  4. BERAPROST SODIUM [Concomitant]
     Active Substance: BERAPROST SODIUM
  5. TOCOPHERYL NICOTINATE [Concomitant]
     Active Substance: TOCOPHERYL NICOTINATE, D-.ALPHA.
  6. CILOSTAZOL. [Concomitant]
     Active Substance: CILOSTAZOL
  7. RECALBON [Concomitant]
     Active Substance: MINODRONIC ACID
  8. TRAMCET [Concomitant]
     Active Substance: ACETAMINOPHEN\TRAMADOL
  9. RIMATIL [Suspect]
     Active Substance: BUCILLAMINE
     Indication: RHEUMATOID ARTHRITIS
     Dosage: 100 MG, QD
     Route: 048
     Dates: start: 20170729
  10. ALFACALCIDOL [Concomitant]
     Active Substance: ALFACALCIDOL
  11. PARIET [Concomitant]
     Active Substance: RABEPRAZOLE SODIUM
  12. PREDNISOLONE. [Concomitant]
     Active Substance: PREDNISOLONE
  13. TRACLEER [Suspect]
     Active Substance: BOSENTAN
     Dosage: 187.5 MG, QD
     Route: 048
     Dates: start: 20161030, end: 20161123
  14. TRACLEER [Suspect]
     Active Substance: BOSENTAN
     Dosage: 125 MG, QD
     Route: 048
     Dates: start: 20161124
  15. CELECOX [Concomitant]
     Active Substance: CELECOXIB
  16. BAYASPIRIN [Concomitant]
     Active Substance: ASPIRIN
  17. TRACLEER [Suspect]
     Active Substance: BOSENTAN
     Indication: SKIN ULCER
     Dosage: 62.5 MG, BID
     Route: 048
     Dates: start: 20160929, end: 20161029
  18. NU-LOTAN [Concomitant]
     Active Substance: LOSARTAN POTASSIUM

REACTIONS (11)
  - Peroneal nerve palsy [Not Recovered/Not Resolved]
  - Anaemia [Not Recovered/Not Resolved]
  - Cerebral infarction [Unknown]
  - Cellulitis [Recovering/Resolving]
  - Aspartate aminotransferase increased [Recovered/Resolved]
  - Limb discomfort [Not Recovered/Not Resolved]
  - Spinal osteoarthritis [Not Recovered/Not Resolved]
  - Arterial disorder [Unknown]
  - Rheumatoid arthritis [Recovering/Resolving]
  - Hepatic function abnormal [Recovered/Resolved]
  - Drug eruption [Recovering/Resolving]

NARRATIVE: CASE EVENT DATE: 20170316
